FAERS Safety Report 9321529 (Version 1)
Quarter: 2013Q2

REPORT INFORMATION
  Report Type: Spontaneous
  Country: US (occurrence: US)
  Receive Date: 20130531
  Receipt Date: 20130531
  Transmission Date: 20140414
  Serious: Yes (Hospitalization)
  Sender: FDA-Public Use
  Company Number: US-BRISTOL-MYERS SQUIBB COMPANY-18951327

PATIENT
  Age: 44 Year
  Sex: Female

DRUGS (1)
  1. SPRYCEL (CML) TABS 70 MG [Suspect]
     Indication: CHRONIC MYELOID LEUKAEMIA
     Dosage: CONTINUING
     Route: 048
     Dates: start: 201103

REACTIONS (1)
  - Surgery [Unknown]
